FAERS Safety Report 21068861 (Version 1)
Quarter: 2022Q3

REPORT INFORMATION
  Report Type: Spontaneous
  Country: FR (occurrence: FR)
  Receive Date: 20220712
  Receipt Date: 20220712
  Transmission Date: 20221027
  Serious: Yes (Other)
  Sender: FDA-Public Use
  Company Number: None

PATIENT
  Age: 54 Year
  Sex: Female
  Weight: 62 kg

DRUGS (8)
  1. METHYLPREDNISOLONE [Suspect]
     Active Substance: METHYLPREDNISOLONE
     Indication: Plasma cell myeloma
     Dosage: 60 MILLIGRAM, QD, EXCEPT ON CHEMOTHERAPY DAYS
     Route: 065
     Dates: start: 20220416, end: 20220420
  2. OXYCODONE [Suspect]
     Active Substance: OXYCODONE
     Indication: Pain
     Dosage: 80 MILLIGRAM, QD
     Route: 065
     Dates: start: 20220405
  3. DEXAMETHASONE [Suspect]
     Active Substance: DEXAMETHASONE
     Indication: Plasma cell myeloma
     Dosage: 40 MILLIGRAM, ON D1, D8, D15 AND D22
     Route: 065
     Dates: start: 20220415, end: 20220506
  4. ACETAMINOPHEN [Suspect]
     Active Substance: ACETAMINOPHEN
     Indication: Pain
     Dosage: 1 GRAM, PRN (OCCASIONAL DOSES + SYSTEMATIC DOSES ON D1, D8, D15 AND D22)
     Route: 065
     Dates: start: 202201, end: 20220613
  5. POLARAMINE [Suspect]
     Active Substance: DEXCHLORPHENIRAMINE MALEATE
     Indication: Chemotherapy side effect prophylaxis
     Dosage: 2 MILLIGRAM, 2 MG ON D1, D8, D15 AND D22
     Route: 065
     Dates: start: 20220415, end: 20220506
  6. REVLIMID [Suspect]
     Active Substance: LENALIDOMIDE
     Indication: Plasma cell myeloma
     Dosage: 25 MILLIGRAM, QD, FOR 21 CONSECUTIVE DAYS OF THE CYCLE, 28-DAY CYCLES
     Route: 065
     Dates: start: 20220415, end: 20220505
  7. DARZALEX [Suspect]
     Active Substance: DARATUMUMAB
     Indication: Plasma cell myeloma
     Dosage: 1800 MILLIGRAM, ON D1, D8 , D15 AND D22
     Route: 065
     Dates: start: 20220415, end: 20220506
  8. BORTEZOMIB [Suspect]
     Active Substance: BORTEZOMIB
     Indication: Plasma cell myeloma
     Dosage: 2.22 MILLIGRAM, 2.22 MG ON D1, D4, D8, D11 OF EACH CYCLE, 28-DAY CYCLES
     Route: 065
     Dates: start: 20220415, end: 20220425

REACTIONS (1)
  - Hepatocellular injury [Recovered/Resolved]

NARRATIVE: CASE EVENT DATE: 20220419
